FAERS Safety Report 9055208 (Version 1)
Quarter: 2013Q1

REPORT INFORMATION
  Report Type: Report from Study
  Country: FR (occurrence: FR)
  Receive Date: 20130206
  Receipt Date: 20130206
  Transmission Date: 20140127
  Serious: Yes (Death, Hospitalization)
  Sender: FDA-Public Use
  Company Number: FR-BAYER-2011-104961

PATIENT
  Age: 76 Year
  Sex: Male
  Weight: 41 kg

DRUGS (17)
  1. REGORAFENIB [Suspect]
     Indication: GASTROINTESTINAL STROMAL TUMOUR
     Dosage: 160 MG, QD, CYCLE 1
     Route: 048
     Dates: start: 20110401, end: 20110414
  2. REGORAFENIB [Suspect]
     Indication: GASTROINTESTINAL STROMAL TUMOUR
     Dosage: 120 MG, QD, CYCLE 1
     Route: 048
     Dates: start: 20110415, end: 20110421
  3. REGORAFENIB [Suspect]
     Indication: GASTROINTESTINAL STROMAL TUMOUR
     Dosage: 120 MG, QD, CYCLE 2
     Route: 048
     Dates: start: 20110429, end: 20110519
  4. REGORAFENIB [Suspect]
     Indication: GASTROINTESTINAL STROMAL TUMOUR
     Dosage: 120 MG, QD, CYCLE 3
     Route: 048
     Dates: start: 20110526, end: 20110615
  5. REGORAFENIB [Suspect]
     Indication: GASTROINTESTINAL STROMAL TUMOUR
     Dosage: 0 MG,
     Dates: start: 20110623, end: 20110630
  6. REGORAFENIB [Suspect]
     Indication: GASTROINTESTINAL STROMAL TUMOUR
     Dosage: 120 MG, QD, CYCLE 4
     Route: 048
     Dates: start: 20110701, end: 20110714
  7. REGORAFENIB [Suspect]
     Indication: GASTROINTESTINAL STROMAL TUMOUR
     Dosage: 120 MG, QD, CYCLE 5
     Dates: start: 20110722, end: 20110811
  8. REGORAFENIB [Suspect]
     Indication: GASTROINTESTINAL STROMAL TUMOUR
     Dosage: 80 MG, QD, CYCLE 6
     Route: 048
     Dates: start: 20110819, end: 20110908
  9. REGORAFENIB [Suspect]
     Indication: GASTROINTESTINAL STROMAL TUMOUR
     Dosage: 80 MG, QD, CYCLE 7
     Route: 048
     Dates: start: 20110916, end: 20111006
  10. REGORAFENIB [Suspect]
     Indication: GASTROINTESTINAL STROMAL TUMOUR
     Dosage: 80 MG, QD
     Route: 048
     Dates: start: 20111013, end: 20111019
  11. SYMBICORT [Concomitant]
     Indication: ASTHMA
     Dosage: 2 PER DAY
     Route: 055
     Dates: start: 1998
  12. KESTIN [Concomitant]
     Indication: ASTHMA
     Dosage: 1 PER DAY
     Route: 048
     Dates: start: 1998
  13. FORLAX [Concomitant]
     Indication: CONSTIPATION
     Dosage: UNK UNK, BID
     Route: 048
     Dates: start: 2006
  14. SPASFON [Concomitant]
     Indication: ABDOMINAL PAIN
     Dosage: UNK UNK, PRN
     Route: 048
     Dates: start: 201010
  15. UVEDOSE [Concomitant]
     Indication: NEUROFIBROMATOSIS
     Dosage: 100000 U, EVERY 15 DAYS
     Route: 048
     Dates: start: 20110622, end: 201108
  16. DOLIPRANE [Concomitant]
     Indication: TOOTHACHE
     Dosage: UNK
  17. SURBRONC [Concomitant]
     Indication: TOOTHACHE

REACTIONS (2)
  - Neurofibromatosis [Fatal]
  - Acute respiratory distress syndrome [Not Recovered/Not Resolved]
